FAERS Safety Report 8890416 (Version 3)
Quarter: 2014Q1

REPORT INFORMATION
  Report Type: Spontaneous
  Country: GB (occurrence: GB)
  Receive Date: 20121106
  Receipt Date: 20140206
  Transmission Date: 20141002
  Serious: Yes (Hospitalization)
  Sender: FDA-Public Use
  Company Number: GB-WATSON-2012-19072

PATIENT
  Age: 43 Year
  Sex: Female

DRUGS (5)
  1. DILTIAZEM HYDROCHLORIDE (UNKNOWN) [Suspect]
     Indication: INTENTIONAL OVERDOSE
     Dosage: 3360 MG, SINGLE
     Route: 048
  2. GABAPENTIN (UNKNOWN) [Suspect]
     Indication: INTENTIONAL OVERDOSE
     Dosage: 1800 MG, SINGLE
     Route: 048
  3. CITALOPRAM HYDROBROMIDE (AELLC) [Suspect]
     Indication: INTENTIONAL OVERDOSE
     Dosage: 560 MG, SINGLE
     Route: 048
  4. DIAZEPAM (AELLC) [Suspect]
     Indication: INTENTIONAL OVERDOSE
     Dosage: 115 MG, SINGLE
     Route: 048
  5. IRBESARTAN (UNKNOWN) [Suspect]
     Indication: INTENTIONAL OVERDOSE
     Dosage: 1800 MG, SINGLE
     Route: 048

REACTIONS (6)
  - Hypoxia [Recovered/Resolved with Sequelae]
  - Intentional overdose [Recovered/Resolved with Sequelae]
  - Hypotension [Recovered/Resolved with Sequelae]
  - Bradycardia [Recovered/Resolved with Sequelae]
  - Atrioventricular block complete [Recovered/Resolved with Sequelae]
  - Pulmonary oedema [Recovered/Resolved with Sequelae]
